FAERS Safety Report 7363851-X (Version None)
Quarter: 2011Q1

REPORT INFORMATION
  Report Type: 
  Country: None (occurrence: None)
  Receive Date: 20110321
  Receipt Date: 20110315
  Transmission Date: 20110831
  Serious: Yes (Other)
  Sender: FDA-Public Use
  Company Number: US-PFIZER INC-2011057332

PATIENT
  Sex: Female
  Weight: 79.3 kg

DRUGS (1)
  1. PREMARIN [Suspect]
     Dosage: 1.25 MG, DAILY
     Route: 048
     Dates: start: 19750101

REACTIONS (8)
  - GENERAL PHYSICAL HEALTH DETERIORATION [None]
  - VISUAL IMPAIRMENT [None]
  - HYPERTENSION [None]
  - HOT FLUSH [None]
  - IRRITABILITY [None]
  - MACULAR DEGENERATION [None]
  - CARDIAC DISORDER [None]
  - PERIPHERAL ARTERIAL OCCLUSIVE DISEASE [None]
